FAERS Safety Report 8305519-9 (Version None)
Quarter: 2012Q2

REPORT INFORMATION
  Report Type: 
  Country: None (occurrence: None)
  Receive Date: 20120423
  Receipt Date: 20120411
  Transmission Date: 20120825
  Serious: Yes (Other)
  Sender: FDA-Public Use
  Company Number: JP-GLAXOSMITHKLINE-B0795383A

PATIENT
  Age: 81 Year
  Sex: Male

DRUGS (2)
  1. BUP-4 [Suspect]
     Indication: BENIGN PROSTATIC HYPERPLASIA
     Dosage: 20MG PER DAY
     Route: 048
     Dates: end: 20120410
  2. DUTASTERIDE [Suspect]
     Indication: BENIGN PROSTATIC HYPERPLASIA
     Dosage: .5MG PER DAY
     Route: 048
     Dates: start: 20111203, end: 20120410

REACTIONS (2)
  - BLOOD CREATINE PHOSPHOKINASE INCREASED [None]
  - HEPATIC FUNCTION ABNORMAL [None]
